FAERS Safety Report 8121223-4 (Version None)
Quarter: 2012Q1

REPORT INFORMATION
  Report Type: 
  Country: None (occurrence: None)
  Receive Date: 20120208
  Receipt Date: 20120201
  Transmission Date: 20120608
  Serious: Yes (Other)
  Sender: FDA-Public Use
  Company Number: US-BAYER-2012-010788

PATIENT
  Age: 23 Year
  Sex: Male
  Weight: 130 kg

DRUGS (7)
  1. ACETYLSALICYLIC ACID SRT [Suspect]
     Indication: TENDON PAIN
  2. VIAGRA [Concomitant]
     Indication: CARDIOVASCULAR DISORDER
     Dosage: 2.5 MG, PRN
     Route: 048
     Dates: start: 20120103
  3. ZOLOFT [Concomitant]
     Indication: DEPRESSION
     Dosage: 200 MG, BID
     Dates: start: 20110615
  4. MARIJUANA [Concomitant]
     Indication: ARTHRALGIA
  5. ACETYLSALICYLIC ACID SRT [Suspect]
     Indication: ARTHRALGIA
     Dosage: 100 MG, BID
  6. MARIJUANA [Concomitant]
     Indication: TENDON PAIN
  7. CIALIS [Concomitant]
     Dosage: 70 MG, PRN
     Dates: start: 20110820

REACTIONS (8)
  - SCROTAL PAIN [None]
  - DIZZINESS [None]
  - ABDOMINAL DISCOMFORT [None]
  - NIPPLE PAIN [None]
  - HOMOSEXUALITY [None]
  - ALOPECIA [None]
  - TESTICULAR SWELLING [None]
  - TESTICULAR HAEMORRHAGE [None]
